FAERS Safety Report 8512688-4 (Version None)
Quarter: 2012Q3

REPORT INFORMATION
  Report Type: 
  Country: None (occurrence: None)
  Receive Date: 20120716
  Receipt Date: 20120712
  Transmission Date: 20120928
  Serious: Yes (Other)
  Sender: FDA-Public Use
  Company Number: AU-PFIZER INC-2012125035

PATIENT
  Age: 74 Year
  Sex: Female
  Weight: 93 kg

DRUGS (2)
  1. PRISTIQ [Suspect]
     Dosage: 150 MG, 1X/DAY
     Route: 048
     Dates: end: 20120523
  2. PRISTIQ [Suspect]
     Indication: MAJOR DEPRESSION
     Dosage: UNK
     Route: 048
     Dates: start: 20120229

REACTIONS (3)
  - ANGIOEDEMA [None]
  - SWOLLEN TONGUE [None]
  - LIP SWELLING [None]
